FAERS Safety Report 4570190-9 (Version None)
Quarter: 2005Q1

REPORT INFORMATION
  Report Type: 
  Country: None (occurrence: None)
  Receive Date: 20050126
  Receipt Date: 20050126
  Transmission Date: 20050727
  Serious: Yes (Hospitalization)
  Sender: FDA-Public Use
  Company Number: None

PATIENT
  Age: 73 Year
  Sex: Male
  Weight: 89.8122 kg

DRUGS (3)
  1. LISINOPRIL [Suspect]
     Dosage: 10 MG DAILY
     Dates: start: 20040801
  2. CLONIDINE [Suspect]
     Indication: HYPERTENSION
     Dosage: 0.2 MG DAILY
     Dates: start: 20040801
  3. TERAZOSIN [Suspect]
     Indication: PROSTATE CANCER
     Dosage: 5 MG Q HS
     Dates: start: 20040901

REACTIONS (1)
  - DIZZINESS [None]
